FAERS Safety Report 5935703-0 (Version None)
Quarter: 2008Q4

REPORT INFORMATION
  Report Type: 
  Country: None (occurrence: None)
  Receive Date: 20081028
  Receipt Date: 20081015
  Transmission Date: 20090506
  Serious: Yes (Hospitalization)
  Sender: FDA-Public Use
  Company Number: 2008BI026692

PATIENT
  Age: 48 Year
  Sex: Female

DRUGS (3)
  1. TYSABRI [Suspect]
     Indication: MULTIPLE SCLEROSIS
     Dosage: 300 MG; QM; IV
     Route: 042
     Dates: start: 20080804, end: 20081008
  2. . [Concomitant]
  3. AVONEX [Concomitant]

REACTIONS (5)
  - ABASIA [None]
  - ARTHROPATHY [None]
  - BACK PAIN [None]
  - CELLULITIS [None]
  - MUSCULAR WEAKNESS [None]
